FAERS Safety Report 11681082 (Version 3)
Quarter: 2015Q4

REPORT INFORMATION
  Report Type: Spontaneous
  Country: US (occurrence: US)
  Receive Date: 20151027
  Receipt Date: 20151110
  Transmission Date: 20160304
  Serious: No
  Sender: FDA-Public Use
  Company Number: US-ELI_LILLY_AND_COMPANY-US201007006829

PATIENT
  Age: 84 Year
  Sex: Female

DRUGS (12)
  1. FORTEO [Suspect]
     Active Substance: TERIPARATIDE
     Dosage: 20 UG, DAILY (1/D)
     Route: 058
  2. FORTEO [Suspect]
     Active Substance: TERIPARATIDE
     Dosage: 20 UG, QD
     Route: 058
  3. CLONAZEPAM. [Concomitant]
     Active Substance: CLONAZEPAM
     Indication: MUSCLE SPASMS
  4. RANITIDINE [Concomitant]
     Active Substance: RANITIDINE\RANITIDINE HYDROCHLORIDE
  5. FORTEO [Suspect]
     Active Substance: TERIPARATIDE
     Indication: OSTEOPOROSIS
     Dosage: 20 UG, DAILY (1/D)
     Route: 058
     Dates: start: 20100714
  6. FORTEO [Suspect]
     Active Substance: TERIPARATIDE
     Dosage: 20 UG, DAILY (1/D)
     Route: 058
  7. FORTEO [Suspect]
     Active Substance: TERIPARATIDE
     Dosage: 20 UG, DAILY (1/D)
     Route: 058
  8. CALCIUM [Concomitant]
     Active Substance: CALCIUM
  9. IRON [Concomitant]
     Active Substance: IRON
  10. FORTEO [Suspect]
     Active Substance: TERIPARATIDE
     Dosage: 20 UG, DAILY (1/D)
     Route: 058
  11. FORTEO [Suspect]
     Active Substance: TERIPARATIDE
     Dosage: 20 UG, QD
     Route: 058
  12. HYDROCODONE [Concomitant]
     Active Substance: HYDROCODONE
     Indication: PAIN

REACTIONS (24)
  - Fatigue [Not Recovered/Not Resolved]
  - Dysstasia [Unknown]
  - Cystitis [Unknown]
  - Visual impairment [Unknown]
  - Musculoskeletal pain [Not Recovered/Not Resolved]
  - Joint injury [Unknown]
  - Malaise [Not Recovered/Not Resolved]
  - Hypotension [Unknown]
  - Tremor [Unknown]
  - Hyperhidrosis [Unknown]
  - Dyspepsia [Not Recovered/Not Resolved]
  - Pain in extremity [Not Recovered/Not Resolved]
  - Asthenia [Unknown]
  - Abdominal pain upper [Not Recovered/Not Resolved]
  - Bone disorder [Unknown]
  - Fall [Recovered/Resolved]
  - Arthropathy [Unknown]
  - Musculoskeletal chest pain [Unknown]
  - Cataract [Unknown]
  - Injection site haemorrhage [Unknown]
  - Back pain [Not Recovered/Not Resolved]
  - Dizziness postural [Unknown]
  - Arthralgia [Not Recovered/Not Resolved]
  - Visual acuity reduced [Unknown]

NARRATIVE: CASE EVENT DATE: 20100801
